FAERS Safety Report 16696356 (Version 8)
Quarter: 2024Q1

REPORT INFORMATION
  Report Type: Spontaneous
  Country: US (occurrence: US)
  Receive Date: 20190813
  Receipt Date: 20240103
  Transmission Date: 20240410
  Serious: Yes (Other)
  Sender: FDA-Public Use
  Company Number: US-PFIZER INC-2019342026

PATIENT
  Age: 59 Year
  Sex: Female
  Weight: 86 kg

DRUGS (20)
  1. ESTRING [Suspect]
     Active Substance: ESTRADIOL
     Indication: Lichen sclerosus
     Dosage: 1 DF, EVERY 3 MONTHS
     Route: 067
  2. ESTRING [Suspect]
     Active Substance: ESTRADIOL
     Dosage: EVERY 3 MONTHS, DOSE/STRENGTH: UNKNOWN
  3. LEVOTHYROXINE [Concomitant]
     Active Substance: LEVOTHYROXINE
     Indication: Thyroid disorder
     Dosage: UNK
  4. NORCO [Concomitant]
     Active Substance: ACETAMINOPHEN\HYDROCODONE BITARTRATE
     Indication: Pain
     Dosage: UNK
  5. FIORICET [Concomitant]
     Active Substance: ACETAMINOPHEN\BUTALBITAL\CAFFEINE
     Indication: Migraine
     Dosage: UNK
  6. ZOLOFT [Concomitant]
     Active Substance: SERTRALINE HYDROCHLORIDE
     Indication: Depression
     Dosage: UNK
  7. CEFIXIME [Concomitant]
     Active Substance: CEFIXIME
     Indication: Restless legs syndrome
     Dosage: UNK
  8. XANAX [Concomitant]
     Active Substance: ALPRAZOLAM
     Indication: Anxiety
     Dosage: UNK
  9. CLONAZEPAM [Concomitant]
     Active Substance: CLONAZEPAM
     Indication: Sleep disorder
     Dosage: UNK (TAKEN AT NIGHT)
  10. TRAZODONE [Concomitant]
     Active Substance: TRAZODONE HYDROCHLORIDE
     Indication: Sleep disorder
     Dosage: UNK
  11. SUDAFED CO [Concomitant]
     Indication: Hypersensitivity
     Dosage: UNK (TAKEN AT LEAST ONCE OR TWICE DAILY)
  12. MECLIZINE HYDROCHLORIDE [Concomitant]
     Active Substance: MECLIZINE HYDROCHLORIDE
     Indication: Vertigo
     Dosage: UNK
  13. BACTRIM DS [Concomitant]
     Active Substance: SULFAMETHOXAZOLE\TRIMETHOPRIM
     Indication: Ear infection
     Dosage: UNK UNK, AS NEEDED [TAKEN AS NEEDED]
  14. BACTRIM DS [Concomitant]
     Active Substance: SULFAMETHOXAZOLE\TRIMETHOPRIM
     Indication: Urinary tract infection
  15. ESTRACE [Concomitant]
     Active Substance: ESTRADIOL
     Indication: Lichen sclerosus
     Dosage: UNK
  16. ESTRATEST [Concomitant]
     Active Substance: ESTROGENS, ESTERIFIED\METHYLTESTOSTERONE
     Indication: Hormone replacement therapy
     Dosage: UNK (HALF STRENGTH)
  17. INTEGRA E [Concomitant]
     Indication: Anaemia
     Dosage: UNK
  18. PYRIDIUM [Concomitant]
     Active Substance: PHENAZOPYRIDINE
     Indication: Lichen sclerosus
     Dosage: UNK
  19. CLOBETASOL [Concomitant]
     Active Substance: CLOBETASOL
     Indication: Lichen sclerosus
     Dosage: UNK
  20. ECONAZOLE NITRATE\TRIAMCINOLONE [Concomitant]
     Active Substance: ECONAZOLE NITRATE\TRIAMCINOLONE
     Indication: Fungal infection
     Dosage: UNK

REACTIONS (6)
  - Complex regional pain syndrome [Unknown]
  - Accident [Unknown]
  - Off label use [Unknown]
  - Drug effective for unapproved indication [Unknown]
  - Pain [Not Recovered/Not Resolved]
  - Gait disturbance [Unknown]

NARRATIVE: CASE EVENT DATE: 20180401
